FAERS Safety Report 20235683 (Version 1)
Quarter: 2021Q4

REPORT INFORMATION
  Report Type: Spontaneous
  Country: BR (occurrence: BR)
  Receive Date: 20211228
  Receipt Date: 20211228
  Transmission Date: 20220304
  Serious: Yes (Death, Hospitalization)
  Sender: FDA-Public Use
  Company Number: BR-TEVA-2021-BR-1992545

PATIENT
  Age: 83 Year
  Sex: Female
  Weight: 54.6 kg

DRUGS (4)
  1. OXALIPLATIN [Suspect]
     Active Substance: OXALIPLATIN
     Indication: Colon neoplasm
     Dosage: DILUTION: TEVAOXALI (5% GLUCOSE SERUM 500ML)
     Route: 042
     Dates: start: 20211027
  2. FLUOROURACIL [Suspect]
     Active Substance: FLUOROURACIL
     Indication: Colon neoplasm
     Dosage: DILUTION: FAULDFLUOR (QS 142.5ML)
     Route: 042
     Dates: start: 20211027
  3. FLUOROURACIL [Suspect]
     Active Substance: FLUOROURACIL
  4. IRBESARTAN [Concomitant]
     Active Substance: IRBESARTAN
     Dosage: 150 MG/DAY

REACTIONS (3)
  - Nausea [Unknown]
  - Vomiting [Unknown]
  - Death [Fatal]

NARRATIVE: CASE EVENT DATE: 20211029
